FAERS Safety Report 7737075-8 (Version None)
Quarter: 2011Q3

REPORT INFORMATION
  Report Type: 
  Country: None (occurrence: None)
  Receive Date: 20110908
  Receipt Date: 20110826
  Transmission Date: 20111222
  Serious: Yes (Hospitalization)
  Sender: FDA-Public Use
  Company Number: US-ELI_LILLY_AND_COMPANY-US201108008969

PATIENT
  Sex: Female

DRUGS (4)
  1. FORTEO [Suspect]
     Indication: OSTEOPOROSIS
     Dosage: 20 UG, QD
     Route: 065
     Dates: start: 20090801, end: 20110501
  2. OMEPRAZOLE [Concomitant]
  3. VITAMIN D [Concomitant]
  4. PLAQUENIL [Concomitant]

REACTIONS (10)
  - RHEUMATOID ARTHRITIS [None]
  - MIKULICZ'S DISEASE [None]
  - HYPERSENSITIVITY [None]
  - AUTOIMMUNE DISORDER [None]
  - MALAISE [None]
  - IDIOPATHIC PULMONARY FIBROSIS [None]
  - ATRIAL FIBRILLATION [None]
  - DYSPNOEA [None]
  - PITYRIASIS ROSEA [None]
  - URTICARIA [None]
